FAERS Safety Report 23231217 (Version 2)
Quarter: 2023Q4

REPORT INFORMATION
  Report Type: Spontaneous
  Country: US (occurrence: US)
  Receive Date: 20231127
  Receipt Date: 20231229
  Transmission Date: 20240109
  Serious: Yes (Other)
  Sender: FDA-Public Use
  Company Number: US-BAYER-2023A167953

PATIENT
  Age: 24 Year
  Sex: Male

DRUGS (1)
  1. KOVALTRY [Suspect]
     Active Substance: ANTIHEMOPHILIC FACTOR, HUMAN RECOMBINANT
     Indication: Haemorrhage
     Dosage: 2500 IU TWICE A DAY AS NEEDED
     Route: 042

REACTIONS (4)
  - Haemorrhage [None]
  - Thrombosis [None]
  - Fall [None]
  - Joint swelling [None]

NARRATIVE: CASE EVENT DATE: 20231119
